FAERS Safety Report 7129802-8 (Version None)
Quarter: 2010Q4

REPORT INFORMATION
  Report Type: 
  Country: None (occurrence: None)
  Receive Date: 20101130
  Receipt Date: 20100816
  Transmission Date: 20110411
  Serious: No
  Sender: FDA-Public Use
  Company Number: US-AMGEN-KDL431985

PATIENT

DRUGS (3)
  1. NPLATE [Suspect]
     Indication: IDIOPATHIC THROMBOCYTOPENIC PURPURA
     Dosage: 186 A?G/KG, UNK
     Dates: start: 20091112, end: 20091217
  2. CORTICOSTEROID NOS [Concomitant]
     Dosage: UNK UNK, UNK
     Dates: start: 20070101
  3. IMMUNOGLOBULIN HUMAN ANTI-RH [Concomitant]

REACTIONS (2)
  - ARTHRALGIA [None]
  - HYPOAESTHESIA [None]
